FAERS Safety Report 5379720-0 (Version None)
Quarter: 2007Q3

REPORT INFORMATION
  Report Type: 
  Country: None (occurrence: None)
  Receive Date: 20070706
  Receipt Date: 20070702
  Transmission Date: 20080115
  Serious: Yes (Other)
  Sender: FDA-Public Use
  Company Number: PHNU2006DE02664

PATIENT
  Age: 35 Year
  Sex: Female

DRUGS (5)
  1. OXCARBAZEPINE [Suspect]
     Indication: EPILEPSY
     Dosage: 1800 MG/D
     Route: 048
     Dates: start: 20050101
  2. OXCARBAZEPINE [Suspect]
     Dosage: 2175 MG/D
     Route: 048
  3. EUTHYROX [Concomitant]
     Indication: THYROIDECTOMY
  4. FOLIC ACID [Concomitant]
     Dosage: 1 DF, QD
     Dates: start: 20060101
  5. IODINE [Concomitant]
     Dosage: 1 DF, QD
     Dates: start: 20060101

REACTIONS (5)
  - BLOOD POTASSIUM DECREASED [None]
  - CAESAREAN SECTION [None]
  - DRUG EXPOSURE DURING PREGNANCY [None]
  - HYPONATRAEMIA [None]
  - RESPIRATORY TRACT INFECTION [None]
